FAERS Safety Report 7545022-7 (Version None)
Quarter: 2011Q2

REPORT INFORMATION
  Report Type: 
  Country: None (occurrence: None)
  Receive Date: 20110614
  Receipt Date: 20091122
  Transmission Date: 20111010
  Serious: Yes (Other)
  Sender: FDA-Public Use
  Company Number: US-BAYER-200940434NA

PATIENT
  Age: 58 Year
  Sex: Male
  Weight: 75 kg

DRUGS (29)
  1. LISINOPRIL [Concomitant]
     Dosage: 10 MG (LONG TERM USE)
     Route: 048
  2. FENTANYL [Concomitant]
     Dosage: UNK
     Route: 042
     Dates: start: 20060303
  3. PROTAMINE SULFATE [Concomitant]
     Dosage: 200 MG, UNK
     Route: 042
     Dates: start: 20060303
  4. ALBUMIN (HUMAN) [Concomitant]
     Dosage: 250 ML, UNK
     Route: 042
     Dates: start: 20060303
  5. METOPROLOL SUCCINATE [Concomitant]
     Dosage: 100 MG (LONG TERM USE)
     Route: 048
  6. GLIPIZIDE [Concomitant]
     Dosage: 5 MG (LONG TERM USE)
     Route: 048
  7. PLASMALYTE 56 IN 5% DEXTROSE [Concomitant]
     Dosage: UNK
     Route: 042
     Dates: start: 20060303
  8. TRASYLOL [Suspect]
     Dosage: 50 ML/HR (INFUSION DOSE)
     Route: 042
     Dates: start: 20060303, end: 20060303
  9. POTASSIUM CHLORIDE [Concomitant]
     Dosage: 10 MEQ, UNK
     Route: 042
     Dates: start: 20060301
  10. INSULIN [Concomitant]
     Dosage: UNK
     Route: 042
     Dates: start: 20060303
  11. TRASYLOL [Suspect]
     Indication: CORONARY ARTERY BYPASS
     Dosage: 200 ML (PUMP PRIME)
     Route: 042
     Dates: start: 20060303, end: 20060303
  12. METFORMIN HCL [Concomitant]
     Dosage: 500 MG, (LONG TERM USE)
     Route: 048
  13. PLAVIX [Concomitant]
     Dosage: 75 MG (LONG TERM USE)
     Route: 048
  14. HEPARIN [Concomitant]
     Dosage: UNK
     Route: 042
     Dates: start: 20060303
  15. TRASYLOL [Suspect]
     Dosage: 150 ML (TOTAL LOADING DOSE)
     Route: 042
     Dates: start: 20060303, end: 20060303
  16. BACITRACIN [Concomitant]
     Dosage: UNK
     Route: 061
     Dates: start: 20060303
  17. DILANTIN [Concomitant]
     Dosage: 100 MG, UNK
     Route: 048
     Dates: start: 20060301
  18. POTASSIUM CHLORIDE [Concomitant]
     Dosage: UNK, (LONG TERM USE)
  19. ACETYLSALICYLIC ACID SRT [Concomitant]
     Dosage: 81 MG (LONG TERM USE)
  20. CIPROFLOXACIN [Concomitant]
     Indication: CELLULITIS
     Dosage: 500 MG, UNK
     Route: 048
     Dates: start: 20060309
  21. PLATELETS [Concomitant]
     Indication: OPERATIVE HAEMORRHAGE
     Dosage: 18 U, UNK
     Route: 042
     Dates: start: 20060303
  22. VANCOMYCIN [Concomitant]
     Dosage: 1 G, UNK
     Route: 042
     Dates: start: 20060303
  23. CARDIO-GREEN [Concomitant]
     Dosage: 0.25 ML, UNK
     Route: 042
     Dates: start: 20060303
  24. PAPAVERINE [Concomitant]
     Dosage: UNK
     Route: 042
     Dates: start: 20060303
  25. ZOCOR [Concomitant]
     Dosage: 40 MG, UNK
     Route: 048
     Dates: start: 20060302
  26. PLAVIX [Concomitant]
     Dosage: 75 MG, UNK
     Route: 048
     Dates: start: 20060301
  27. NITROGLYCERIN [Concomitant]
     Indication: ANGINA PECTORIS
     Dosage: 0.4 MG, PRN CHEST PAIN (LONG TERM USE)
     Route: 060
  28. FRESH FROZEN PLASMA [Concomitant]
     Dosage: 2 U, UNK
     Route: 042
     Dates: start: 20060303
  29. PROPOFOL [Concomitant]
     Dosage: UNK
     Route: 042
     Dates: start: 20060303

REACTIONS (13)
  - RENAL IMPAIRMENT [None]
  - RENAL INJURY [None]
  - UNEVALUABLE EVENT [None]
  - STRESS [None]
  - EMOTIONAL DISTRESS [None]
  - PAIN [None]
  - ANHEDONIA [None]
  - FEAR [None]
  - RENAL FAILURE [None]
  - DEPRESSION [None]
  - MEMORY IMPAIRMENT [None]
  - ANXIETY [None]
  - INJURY [None]
